FAERS Safety Report 9736947 (Version 1)
Quarter: 2013Q4

REPORT INFORMATION
  Report Type: Spontaneous
  Country: JP (occurrence: JP)
  Receive Date: 20131206
  Receipt Date: 20131206
  Transmission Date: 20140711
  Serious: Yes (Other)
  Sender: FDA-Public Use
  Company Number: JP-SA-2013SA124234

PATIENT
  Age: 71 Year
  Sex: Male

DRUGS (1)
  1. TAXOTERE [Suspect]
     Indication: LUNG NEOPLASM MALIGNANT
     Route: 042

REACTIONS (1)
  - Deafness [Unknown]
